FAERS Safety Report 10889623 (Version 5)
Quarter: 2015Q3

REPORT INFORMATION
  Report Type: Spontaneous
  Country: US (occurrence: US)
  Receive Date: 20150305
  Receipt Date: 20150909
  Transmission Date: 20151125
  Serious: Yes (Hospitalization, Other)
  Sender: FDA-Public Use
  Company Number: US-GLAXOSMITHKLINE-US2015017817

PATIENT
  Age: 81 Year
  Sex: Female

DRUGS (11)
  1. VITAMIN E [Concomitant]
     Active Substance: .ALPHA.-TOCOPHEROL
  2. ADVAIR HFA [Suspect]
     Active Substance: FLUTICASONE PROPIONATE\SALMETEROL XINAFOATE
     Indication: CHRONIC OBSTRUCTIVE PULMONARY DISEASE
     Dosage: 2 PUFF(S), BID
     Route: 055
     Dates: start: 20150601
  3. MUCINEX [Concomitant]
     Active Substance: GUAIFENESIN
  4. PRAVASTATIN [Concomitant]
     Active Substance: PRAVASTATIN\PRAVASTATIN SODIUM
  5. FUROSEMIDE. [Concomitant]
     Active Substance: FUROSEMIDE
  6. CALCIUM + D [Concomitant]
     Active Substance: CALCIUM\VITAMIN D
  7. ADVAIR DISKUS [Suspect]
     Active Substance: FLUTICASONE PROPIONATE\SALMETEROL XINAFOATE
     Dosage: 1 PUFF(S), BID
     Route: 055
  8. MAGNESIUM [Concomitant]
     Active Substance: MAGNESIUM
  9. SENNA [Concomitant]
     Active Substance: SENNA LEAF\SENNOSIDES\SENNOSIDES A AND B
  10. ADVAIR DISKUS [Suspect]
     Active Substance: FLUTICASONE PROPIONATE\SALMETEROL XINAFOATE
     Indication: CHRONIC OBSTRUCTIVE PULMONARY DISEASE
     Dosage: 1 PUFF(S), BID
     Route: 055
  11. AMPICILLIN [Concomitant]
     Active Substance: AMPICILLIN

REACTIONS (8)
  - Dyspnoea [Unknown]
  - Nasopharyngitis [Recovered/Resolved]
  - Device use error [Unknown]
  - Blood pressure decreased [Recovered/Resolved]
  - Bronchitis [Recovering/Resolving]
  - Product quality issue [Unknown]
  - Drug ineffective [Unknown]
  - Pneumonia [Recovering/Resolving]

NARRATIVE: CASE EVENT DATE: 20150528
